FAERS Safety Report 15626847 (Version 4)
Quarter: 2022Q1

REPORT INFORMATION
  Report Type: Spontaneous
  Country: ZA (occurrence: ZA)
  Receive Date: 20181116
  Receipt Date: 20220310
  Transmission Date: 20220423
  Serious: Yes (Other)
  Sender: FDA-Public Use
  Company Number: US-PFIZER INC-2018467767

PATIENT
  Age: 42 Year
  Sex: Female

DRUGS (2)
  1. EFFEXOR XR [Suspect]
     Active Substance: VENLAFAXINE HYDROCHLORIDE
     Dosage: UNK
  2. EFFEXOR [Suspect]
     Active Substance: VENLAFAXINE HYDROCHLORIDE
     Dosage: UNK

REACTIONS (10)
  - Drug dependence [Unknown]
  - Cardiac arrest [Unknown]
  - Seizure [Unknown]
  - Respiratory arrest [Unknown]
  - Intracranial pressure increased [Unknown]
  - Optic nerve compression [Unknown]
  - Visual impairment [Unknown]
  - Liver disorder [Unknown]
  - Underweight [Unknown]
  - Bedridden [Unknown]
